FAERS Safety Report 11441170 (Version 1)
Quarter: 2015Q3

REPORT INFORMATION
  Report Type: Spontaneous
  Country: US (occurrence: US)
  Receive Date: 20150821
  Receipt Date: 20150821
  Transmission Date: 20151125
  Serious: No
  Sender: FDA-Public Use
  Company Number: US-ELI_LILLY_AND_COMPANY-US200803001483

PATIENT

DRUGS (1)
  1. CYMBALTA [Suspect]
     Active Substance: DULOXETINE HYDROCHLORIDE
     Indication: FIBROMYALGIA

REACTIONS (14)
  - Night sweats [Unknown]
  - Alopecia [Unknown]
  - Hypersomnia [Unknown]
  - Feeling hot [Unknown]
  - Rash [Unknown]
  - Depressed mood [Unknown]
  - Suicidal ideation [Unknown]
  - Dyskinesia [Unknown]
  - Feeling abnormal [Unknown]
  - Insomnia [Unknown]
  - Influenza like illness [Unknown]
  - Tremor [Unknown]
  - Malaise [Unknown]
  - Nightmare [Unknown]

NARRATIVE: CASE EVENT DATE: 2007
